FAERS Safety Report 9775921 (Version 1)
Quarter: 2013Q4

REPORT INFORMATION
  Report Type: Spontaneous
  Country: IT (occurrence: IT)
  Receive Date: 20131220
  Receipt Date: 20131220
  Transmission Date: 20140711
  Serious: Yes (Hospitalization)
  Sender: FDA-Public Use
  Company Number: IT-TEVA-451257ISR

PATIENT
  Age: 68 Year
  Sex: Female

DRUGS (6)
  1. FLUOXETINA [Suspect]
     Dosage: 20 MILLIGRAM DAILY;
     Dates: start: 20131128, end: 20131209
  2. ABILIFY 15 MG [Interacting]
     Dosage: 15 MILLIGRAM DAILY;
     Route: 048
     Dates: start: 20131015, end: 20131209
  3. MIRTAZAPINA [Concomitant]
     Dosage: 30 MILLIGRAM DAILY;
     Dates: start: 20131104, end: 20131209
  4. XANAX 1 MG [Concomitant]
     Dosage: 3 MILLIGRAM DAILY;
     Dates: start: 20131128, end: 20131209
  5. CARDIOASPIRIN 100 MG [Concomitant]
     Dosage: GASTRORESISTANT TABLET
  6. PLAUNAZIDE 20 MG/12.5 MG [Concomitant]

REACTIONS (2)
  - Dysstasia [Recovered/Resolved]
  - Drug interaction [Recovered/Resolved]
